FAERS Safety Report 8823443 (Version 1)
Quarter: 2012Q4

REPORT INFORMATION
  Report Type: 
  Country: DK (occurrence: DK)
  Receive Date: 20121003
  Receipt Date: 20121003
  Transmission Date: 20130627
  Serious: Yes (Other)
  Sender: FDA-Public Use
  Company Number: DK-TEVA-349299ISR

PATIENT
  Age: 70 Year
  Sex: Male

DRUGS (13)
  1. CLOPIDOGREL [Suspect]
     Indication: THROMBOSIS PROPHYLAXIS
     Dosage: 75 Milligram Daily; STRENGTH: 75 mg
     Route: 048
     Dates: start: 20120604, end: 20120713
  2. PRADAXA [Interacting]
     Indication: ATRIAL FIBRILLATION
     Dosage: 300 Milligram Daily; STRENGTH: 150 mg.
     Route: 048
     Dates: start: 20120713, end: 20120714
  3. BURANA [Interacting]
     Indication: PAIN
     Dosage: 1200 Milligram Daily; STRENGTH: 400 mg
     Route: 048
     Dates: start: 20120711, end: 20120713
  4. BRENTAN [Interacting]
     Indication: ORAL CANDIDIASIS
     Dates: start: 20120703, end: 20120715
  5. SIMVASTATIN [Concomitant]
     Indication: HYPERCHOLESTEROLAEMIA
  6. SELO-ZOK [Concomitant]
  7. ENACODAN [Concomitant]
     Indication: HYPERTENSION
  8. FURIX [Concomitant]
  9. PINEX [Concomitant]
  10. KALEORID [Concomitant]
     Indication: MINERAL SUPPLEMENTATION
  11. PENOMAX [Concomitant]
     Indication: URINARY TRACT INFECTION
  12. ENELAPRIL [Concomitant]
     Indication: HYPERTENSION
  13. PIVMECILLINAM [Concomitant]
     Indication: URINARY TRACT INFECTION

REACTIONS (2)
  - Drug interaction [Unknown]
  - Conjunctival haemorrhage [Recovering/Resolving]
